FAERS Safety Report 8847233 (Version 1)
Quarter: 2012Q4

REPORT INFORMATION
  Report Type: 
  Country: JP (occurrence: JP)
  Receive Date: 20121018
  Receipt Date: 20121018
  Transmission Date: 20130627
  Serious: Yes (Hospitalization)
  Sender: FDA-Public Use
  Company Number: PHHY2012JP092391

PATIENT
  Age: 89 Year
  Sex: Female

DRUGS (5)
  1. RIVASTIGMIN [Suspect]
     Indication: DEMENTIA ALZHEIMER^S TYPE
     Dosage: 18 mg, Daily
     Route: 062
  2. EVISTA [Concomitant]
  3. ADALAT CR [Concomitant]
  4. VESICARE [Concomitant]
  5. DIOVAN [Concomitant]

REACTIONS (2)
  - Lumbar vertebral fracture [Unknown]
  - Vomiting [Recovered/Resolved]
